FAERS Safety Report 8516658-1 (Version None)
Quarter: 2012Q2

REPORT INFORMATION
  Report Type: 
  Country: None (occurrence: None)
  Receive Date: 20120406
  Receipt Date: 20090512
  Transmission Date: 20120825
  Serious: Yes (Life-Threatening)
  Sender: FDA-Public Use
  Company Number: PHEH2009US04719

PATIENT

DRUGS (1)
  1. TASIGNA [Suspect]

REACTIONS (1)
  - RASH [None]
